FAERS Safety Report 24033537 (Version 1)
Quarter: 2024Q3

REPORT INFORMATION
  Report Type: Report from Study
  Country: AT (occurrence: AT)
  Receive Date: 20240701
  Receipt Date: 20240701
  Transmission Date: 20241017
  Serious: No
  Sender: ROCHE
  Company Number: AT-ROCHE-3545560

PATIENT
  Age: 1 Year
  Sex: Female
  Weight: 6.5 kg

DRUGS (2)
  1. EVRYSDI [Suspect]
     Active Substance: RISDIPLAM
     Indication: Spinal muscular atrophy
     Route: 048
     Dates: start: 20231129, end: 20240326
  2. CHOLECALCIFEROL [Concomitant]
     Active Substance: CHOLECALCIFEROL
     Route: 065
     Dates: start: 20231026

REACTIONS (1)
  - Rhinitis [Recovered/Resolved]

NARRATIVE: CASE EVENT DATE: 20240305
